FAERS Safety Report 5494886-X (Version None)
Quarter: 2007Q4

REPORT INFORMATION
  Report Type: 
  Country: None (occurrence: None)
  Receive Date: 20071024
  Receipt Date: 20071016
  Transmission Date: 20080405
  Serious: Yes (Other)
  Sender: FDA-Public Use
  Company Number: US-JNJFOC-20071004377

PATIENT
  Age: 4 Year
  Sex: Male

DRUGS (5)
  1. REMICADE [Suspect]
     Route: 042
     Dates: start: 20070501
  2. REMICADE [Suspect]
     Route: 042
     Dates: start: 20070501
  3. REMICADE [Suspect]
     Indication: COLITIS ULCERATIVE
     Route: 042
     Dates: start: 20070501
  4. SULFASALAZINE [Concomitant]
     Indication: COLITIS ULCERATIVE
  5. PREDNISOLONE [Concomitant]
     Indication: COLITIS ULCERATIVE

REACTIONS (2)
  - ABDOMINAL PAIN UPPER [None]
  - HAEMATOCHEZIA [None]
